FAERS Safety Report 10501407 (Version 1)
Quarter: 2014Q4

REPORT INFORMATION
  Report Type: Spontaneous
  Country: US (occurrence: None)
  Receive Date: 20141006
  Receipt Date: 20141006
  Transmission Date: 20150528
  Serious: Yes (Life-Threatening, Hospitalization, Disabling)
  Sender: FDA-Public Use
  Company Number: None

PATIENT
  Age: 56 Year
  Sex: Female
  Weight: 63.5 kg

DRUGS (3)
  1. ATIVAN [Suspect]
     Active Substance: LORAZEPAM
     Indication: MUSCLE DISORDER
     Dosage: 1.5 MGS ONCE DAILY TAKEN BY MOUTH
     Route: 048
     Dates: start: 20120816, end: 20130809
  2. ATIVAN [Suspect]
     Active Substance: LORAZEPAM
     Indication: INSOMNIA
     Dosage: 1.5 MGS ONCE DAILY TAKEN BY MOUTH
     Route: 048
     Dates: start: 20120816, end: 20130809
  3. ATIVAN [Suspect]
     Active Substance: LORAZEPAM
     Indication: BURNING SENSATION
     Dosage: 1.5 MGS ONCE DAILY TAKEN BY MOUTH
     Route: 048
     Dates: start: 20120816, end: 20130809

REACTIONS (13)
  - Oropharyngeal pain [None]
  - Throat tightness [None]
  - Dizziness [None]
  - Gastrointestinal disorder [None]
  - Depression [None]
  - Weight decreased [None]
  - Back pain [None]
  - Throat irritation [None]
  - Suicidal ideation [None]
  - Malaise [None]
  - Breast cancer [None]
  - Insomnia [None]
  - Anxiety [None]

NARRATIVE: CASE EVENT DATE: 20120816
